FAERS Safety Report 6400169-3 (Version None)
Quarter: 2009Q4

REPORT INFORMATION
  Report Type: 
  Country: None (occurrence: None)
  Receive Date: 20091014
  Receipt Date: 20090925
  Transmission Date: 20100525
  Serious: Yes (Life-Threatening, Other)
  Sender: FDA-Public Use
  Company Number: AU-JNJFOC-20090807406

PATIENT
  Sex: Male

DRUGS (1)
  1. PROPULSID [Suspect]
     Indication: DIABETIC GASTROPARESIS
     Route: 065
     Dates: start: 20090818

REACTIONS (3)
  - ATRIOVENTRICULAR BLOCK FIRST DEGREE [None]
  - ELECTROCARDIOGRAM QT PROLONGED [None]
  - NAUSEA [None]
